FAERS Safety Report 23371967 (Version 1)
Quarter: 2024Q1

REPORT INFORMATION
  Report Type: Spontaneous
  Country: US (occurrence: US)
  Receive Date: 20240105
  Receipt Date: 20240105
  Transmission Date: 20240410
  Serious: Yes (Other)
  Sender: FDA-Public Use
  Company Number: DE-SUN PHARMACEUTICAL INDUSTRIES LTD-2023RR-422970

PATIENT
  Age: 82 Year
  Sex: Male

DRUGS (26)
  1. SPORANOX [Suspect]
     Active Substance: ITRACONAZOLE
     Indication: Body tinea
     Dosage: 14 DAYS 2X 1 CAPSULE DAILY, THEN TWICE WEEKLY ADMINISTRATION OF 2X 50MG. 50MG SUBA ITRACONAZOLE WAS
     Route: 048
     Dates: start: 20210315
  2. SPORANOX [Suspect]
     Active Substance: ITRACONAZOLE
     Indication: Onychomycosis
     Dosage: 50 MG, BID
     Route: 048
     Dates: start: 20220422
  3. SPORANOX [Suspect]
     Active Substance: ITRACONAZOLE
     Route: 048
     Dates: start: 20210315
  4. SPORANOX [Suspect]
     Active Substance: ITRACONAZOLE
     Dosage: UNK, SLOW REDUCTION 3 DAYS 1 TABLET, 1 DAY 2 TABLETS SUBA ITRACONAZOLE, EVENTUALLY 2 X 50 MG EVERY O
     Route: 048
     Dates: start: 20220316
  5. SPORANOX [Suspect]
     Active Substance: ITRACONAZOLE
     Route: 048
     Dates: start: 201611, end: 201703
  6. TERBINAFINE [Suspect]
     Active Substance: TERBINAFINE
     Indication: Body tinea
     Route: 065
     Dates: end: 20210207
  7. TERBINAFINE [Suspect]
     Active Substance: TERBINAFINE
     Indication: Onychomycosis
     Route: 065
     Dates: start: 201504, end: 201611
  8. TERBINAFINE [Suspect]
     Active Substance: TERBINAFINE
     Route: 065
     Dates: start: 20220611
  9. TERBINAFINE [Suspect]
     Active Substance: TERBINAFINE
     Route: 065
     Dates: start: 2012, end: 201306
  10. FLUCONAZOLE [Suspect]
     Active Substance: FLUCONAZOLE
     Indication: Body tinea
     Route: 065
     Dates: start: 201306, end: 201504
  11. FLUCONAZOLE [Suspect]
     Active Substance: FLUCONAZOLE
     Dosage: 50 MG, ONCE
     Route: 065
     Dates: start: 20210207
  12. FLUCONAZOLE [Suspect]
     Active Substance: FLUCONAZOLE
     Dosage: 200 UNK, QW
     Route: 065
     Dates: start: 201504, end: 201611
  13. VORICONAZOLE [Suspect]
     Active Substance: VORICONAZOLE
     Indication: Body tinea
     Dosage: 400 MG, QD
     Route: 065
     Dates: start: 201708, end: 201710
  14. VORICONAZOLE [Suspect]
     Active Substance: VORICONAZOLE
     Route: 065
     Dates: start: 201711, end: 201712
  15. VORICONAZOLE [Suspect]
     Active Substance: VORICONAZOLE
     Route: 065
     Dates: start: 201711, end: 201712
  16. UREA [Concomitant]
     Active Substance: UREA
     Indication: Body tinea
     Dosage: 10 %
     Dates: start: 20201106
  17. UREA [Concomitant]
     Active Substance: UREA
     Dates: start: 201504, end: 201611
  18. CICLOPIROX OLAMINE [Concomitant]
     Active Substance: CICLOPIROX OLAMINE
     Indication: Body tinea
     Dosage: 1 DF, QD
     Dates: start: 201504
  19. CICLOPIROX OLAMINE [Concomitant]
     Active Substance: CICLOPIROX OLAMINE
     Dosage: 1 DF, QD
     Route: 061
     Dates: start: 20200611
  20. CICLOPIROX OLAMINE [Concomitant]
     Active Substance: CICLOPIROX OLAMINE
     Route: 065
     Dates: start: 20210315
  21. CICLOPIROX OLAMINE [Concomitant]
     Active Substance: CICLOPIROX OLAMINE
     Route: 065
     Dates: start: 201711, end: 201712
  22. CICLOPIROX OLAMINE [Concomitant]
     Active Substance: CICLOPIROX OLAMINE
     Dosage: IN THE MORNING
     Route: 065
     Dates: start: 20210418
  23. CLOTRIMAZOLE;TRIAMCINOLONE [Concomitant]
     Indication: Body tinea
     Dosage: UNK, IN ACETONATUM UNGUENTUM BASALIS DAC
     Route: 065
     Dates: start: 20210207
  24. BIFONAZOLE [Concomitant]
     Active Substance: BIFONAZOLE
     Indication: Nail operation
     Dates: start: 201504, end: 201611
  25. BIFONAZOLE [Concomitant]
     Active Substance: BIFONAZOLE
     Indication: Body tinea
     Dosage: 1 DF, QD
     Route: 061
     Dates: start: 20200611
  26. BIFONAZOLE [Concomitant]
     Active Substance: BIFONAZOLE
     Dates: start: 201504, end: 201611

REACTIONS (8)
  - Hepatic enzyme increased [Unknown]
  - Drug intolerance [Unknown]
  - Fungal infection [Unknown]
  - Drug ineffective [Unknown]
  - Drug resistance [Unknown]
  - Disease progression [Unknown]
  - Adverse event [Unknown]
  - Drug ineffective [Unknown]
